FAERS Safety Report 23751992 (Version 1)
Quarter: 2024Q2

REPORT INFORMATION
  Report Type: Spontaneous
  Country: US (occurrence: US)
  Receive Date: 20240417
  Receipt Date: 20240417
  Transmission Date: 20240716
  Serious: Yes (Hospitalization)
  Sender: FDA-Public Use
  Company Number: US-BRAEBURN-US-BRA-24-000303

PATIENT
  Sex: Male

DRUGS (1)
  1. BRIXADI [Suspect]
     Active Substance: BUPRENORPHINE
     Indication: Dependence
     Dosage: 96 MILLIGRAM (0.27 ML), EVERY 28 DAYS
     Route: 058

REACTIONS (4)
  - Pancreatitis [Unknown]
  - Cholelithiasis [Unknown]
  - Withdrawal syndrome [Unknown]
  - Rash [Unknown]
